FAERS Safety Report 9144440 (Version 1)
Quarter: 2013Q1

REPORT INFORMATION
  Report Type: Spontaneous
  Country: NO (occurrence: NO)
  Receive Date: 20130306
  Receipt Date: 20130306
  Transmission Date: 20140127
  Serious: Yes (Disabling)
  Sender: FDA-Public Use
  Company Number: NO-BAXTER-2013BAX007640

PATIENT
  Sex: Female

DRUGS (6)
  1. HOLOXAN [Suspect]
     Indication: CERVIX CARCINOMA STAGE I
     Route: 042
     Dates: start: 20010115, end: 20010116
  2. UROMITEXAN [Suspect]
     Indication: CERVIX CARCINOMA STAGE I
     Route: 042
     Dates: start: 20010115, end: 20010116
  3. CISPLATIN [Suspect]
     Indication: CERVIX CARCINOMA STAGE I
     Route: 042
     Dates: start: 20010115, end: 20010116
  4. 5FU [Suspect]
     Indication: CERVIX CARCINOMA STAGE I
     Route: 042
     Dates: start: 20010115, end: 20010116
  5. FOLIC ACID [Concomitant]
     Indication: CERVIX CARCINOMA
     Route: 042
     Dates: start: 20010115, end: 20010116
  6. FILGRASTIM [Concomitant]
     Indication: PRODUCT USED FOR UNKNOWN INDICATION
     Route: 065

REACTIONS (1)
  - Cognitive disorder [Not Recovered/Not Resolved]
